FAERS Safety Report 9386654 (Version 1)
Quarter: 2013Q3

REPORT INFORMATION
  Report Type: Spontaneous
  Country: US (occurrence: None)
  Receive Date: 20130703
  Receipt Date: 20130703
  Transmission Date: 20140515
  Serious: Yes (Life-Threatening, Disabling)
  Sender: FDA-Public Use
  Company Number: None

PATIENT
  Age: 51 Year
  Sex: Female
  Weight: 79.5 kg

DRUGS (1)
  1. TYSABRI [Suspect]

REACTIONS (1)
  - Progressive multifocal leukoencephalopathy [None]
